FAERS Safety Report 15376635 (Version 2)
Quarter: 2018Q4

REPORT INFORMATION
  Report Type: Spontaneous
  Country: US (occurrence: US)
  Receive Date: 20180912
  Receipt Date: 20181116
  Transmission Date: 20190204
  Serious: No
  Sender: FDA-Public Use
  Company Number: US-ASTRAZENECA-2018SF05494

PATIENT
  Sex: Male
  Weight: 103.4 kg

DRUGS (6)
  1. VITAMIN C [Concomitant]
     Active Substance: ASCORBIC ACID
     Indication: VITAMIN C ABNORMAL
     Route: 048
  2. CAFFEINE. [Concomitant]
     Active Substance: CAFFEINE
     Indication: CAFFEINE CONSUMPTION
     Dosage: 3-4 CUPS OF COFFEE DAILY
     Route: 048
  3. SYMBICORT [Suspect]
     Active Substance: BUDESONIDE\FORMOTEROL FUMARATE DIHYDRATE
     Indication: CHRONIC OBSTRUCTIVE PULMONARY DISEASE
     Dosage: 160/4.5 MCG ,TWO TIMES A DAY
     Route: 055
  4. ASPIRIN. [Concomitant]
     Active Substance: ASPIRIN
     Indication: PROPHYLAXIS
     Route: 048
  5. ALEVE [Concomitant]
     Active Substance: NAPROXEN SODIUM
     Indication: PAIN
     Dosage: 2.0DF UNKNOWN
  6. SYMBICORT [Suspect]
     Active Substance: BUDESONIDE\FORMOTEROL FUMARATE DIHYDRATE
     Indication: CHRONIC OBSTRUCTIVE PULMONARY DISEASE
     Dosage: 80/4.5 MCG ,TWO TIMES A DAY
     Route: 055
     Dates: start: 20180802

REACTIONS (15)
  - Vision blurred [Unknown]
  - Chronic obstructive pulmonary disease [Unknown]
  - Dysphonia [Unknown]
  - Product use in unapproved indication [Unknown]
  - Weight increased [Not Recovered/Not Resolved]
  - Oxygen saturation decreased [Unknown]
  - Lung infection [Unknown]
  - Oral candidiasis [Unknown]
  - Glycosylated haemoglobin increased [Unknown]
  - Dyspnoea exertional [Unknown]
  - Urinary incontinence [Unknown]
  - Dry mouth [Unknown]
  - Intentional device misuse [Unknown]
  - Fatigue [Unknown]
  - Off label use [Unknown]
